FAERS Safety Report 7003188-1 (Version None)
Quarter: 2010Q3

REPORT INFORMATION
  Report Type: 
  Country: None (occurrence: None)
  Receive Date: 20100916
  Receipt Date: 20100912
  Transmission Date: 20110219
  Serious: Yes (Other)
  Sender: FDA-Public Use
  Company Number: TRP_07242_2010

PATIENT
  Sex: Male

DRUGS (2)
  1. RIBAVARIN [Suspect]
     Indication: PRODUCT USED FOR UNKNOWN INDICATION
     Dosage: DF
  2. PEGASYS [Suspect]
     Indication: PRODUCT USED FOR UNKNOWN INDICATION
     Dosage: DF

REACTIONS (4)
  - ALCOHOLISM [None]
  - BLOOD CHOLESTEROL INCREASED [None]
  - DRUG DEPENDENCE [None]
  - DRUG DOSE OMISSION [None]
